FAERS Safety Report 4699832-4 (Version None)
Quarter: 2005Q2

REPORT INFORMATION
  Report Type: 
  Country: None (occurrence: None)
  Receive Date: 20050623
  Receipt Date: 20050610
  Transmission Date: 20051028
  Serious: Yes (Hospitalization, Other)
  Sender: FDA-Public Use
  Company Number: HQWYE257525APR05

PATIENT
  Age: 42 Year
  Sex: Female
  Weight: 64.5 kg

DRUGS (4)
  1. RAPAMUNE [Suspect]
     Indication: PROPHYLAXIS AGAINST TRANSPLANT REJECTION
     Dosage: 7 MG 1X PER 1 DAY, ORAL
     Route: 048
     Dates: start: 20050404
  2. MYCOPHENOLATE MOFETIL (MYCOPHENOLATE MOFETIL) [Concomitant]
  3. ZENAPAX [Concomitant]
  4. PREDNISONE [Concomitant]

REACTIONS (10)
  - ALBUMIN URINE [None]
  - BLOOD IRON DECREASED [None]
  - BLOOD PHOSPHORUS DECREASED [None]
  - GASTROINTESTINAL HAEMORRHAGE [None]
  - GLUCOSE URINE [None]
  - HAEMATOCRIT DECREASED [None]
  - HAEMOGLOBIN DECREASED [None]
  - HAEMORRHOIDAL HAEMORRHAGE [None]
  - RED BLOOD CELL COUNT DECREASED [None]
  - TRANSFERRIN DECREASED [None]
